FAERS Safety Report 5984168-1 (Version None)
Quarter: 2008Q4

REPORT INFORMATION
  Report Type: 
  Country: None (occurrence: None)
  Receive Date: 20081208
  Receipt Date: 20081008
  Transmission Date: 20090506
  Serious: Yes (Other)
  Sender: FDA-Public Use
  Company Number: US-AMGEN-QUU309010

PATIENT
  Sex: Female

DRUGS (5)
  1. ENBREL [Suspect]
     Indication: PSORIASIS
     Dates: start: 20060301
  2. OLUX [Concomitant]
     Dates: start: 20050403
  3. TACALCITOL [Concomitant]
     Dates: start: 20050404
  4. METHOTREXATE [Concomitant]
     Dates: start: 20051103
  5. UNSPECIFIED MEDICATION [Concomitant]
     Dates: start: 20060706

REACTIONS (1)
  - MALIGNANT MELANOMA [None]
